FAERS Safety Report 20937933 (Version 1)
Quarter: 2022Q2

REPORT INFORMATION
  Report Type: Spontaneous
  Country: IL (occurrence: IL)
  Receive Date: 20220609
  Receipt Date: 20220609
  Transmission Date: 20220721
  Serious: Yes (Other)
  Sender: FDA-Public Use
  Company Number: IL-BAUSCH-BL-2022-013944

PATIENT
  Age: 52 Year
  Sex: Male

DRUGS (4)
  1. ACYCLOVIR [Suspect]
     Active Substance: ACYCLOVIR
     Indication: Acute haemorrhagic leukoencephalitis
     Route: 065
  2. VANCOMYCIN [Suspect]
     Active Substance: VANCOMYCIN
     Indication: Acute haemorrhagic leukoencephalitis
     Route: 065
  3. METHYLPREDNISOLONE [Suspect]
     Active Substance: METHYLPREDNISOLONE
     Indication: Acute haemorrhagic leukoencephalitis
     Route: 042
  4. MANNITOL [Suspect]
     Active Substance: MANNITOL
     Indication: Acute haemorrhagic leukoencephalitis
     Route: 065

REACTIONS (1)
  - Therapy non-responder [Unknown]
